FAERS Safety Report 6924378-X (Version None)
Quarter: 2010Q3

REPORT INFORMATION
  Report Type: 
  Country: None (occurrence: None)
  Receive Date: 20100811
  Receipt Date: 20100811
  Transmission Date: 20110219
  Serious: Yes (Life-Threatening, Disabling)
  Sender: FDA-Public Use
  Company Number: None

PATIENT
  Sex: Female
  Weight: 36.4 kg

DRUGS (2)
  1. TRAZODONE HCL [Suspect]
  2. TRAMADOL HCL [Suspect]

REACTIONS (10)
  - ANXIETY [None]
  - DEPRESSION [None]
  - DIARRHOEA [None]
  - DRUG DISPENSING ERROR [None]
  - FATIGUE [None]
  - HEADACHE [None]
  - INFLUENZA LIKE ILLNESS [None]
  - MEDICATION ERROR [None]
  - VISION BLURRED [None]
  - WRONG DRUG ADMINISTERED [None]
